FAERS Safety Report 9849901 (Version 5)
Quarter: 2014Q2

REPORT INFORMATION
  Report Type: Spontaneous
  Country: JP (occurrence: JP)
  Receive Date: 20140128
  Receipt Date: 20140404
  Transmission Date: 20141212
  Serious: Yes (Other)
  Sender: FDA-Public Use
  Company Number: JP-PFIZER INC-2014019830

PATIENT
  Age: 12 Month
  Sex: Male

DRUGS (1)
  1. LIPITOR [Suspect]
     Dosage: 10 MG, SINGLE
     Route: 048
     Dates: start: 20140109, end: 20140109

REACTIONS (2)
  - Loss of control of legs [Recovered/Resolved]
  - Accidental exposure to product by child [Recovered/Resolved]
